FAERS Safety Report 5376234-9 (Version None)
Quarter: 2007Q3

REPORT INFORMATION
  Report Type: 
  Country: None (occurrence: None)
  Receive Date: 20070702
  Receipt Date: 20070621
  Transmission Date: 20080115
  Serious: Yes (Hospitalization, Disabling, Other)
  Sender: FDA-Public Use
  Company Number: US-ROCHE-384838

PATIENT
  Age: 24 Year
  Sex: Female
  Weight: 46.3 kg

DRUGS (10)
  1. ACCUTANE [Suspect]
     Indication: ACNE
     Route: 048
     Dates: start: 19990901, end: 19991101
  2. ACCUTANE [Suspect]
     Dosage: REPORTED AS 40 MG AND 10 MG
     Route: 048
     Dates: start: 19991101, end: 20000201
  3. ACCUTANE [Suspect]
     Dosage: REPORTED AS 40 MG AND 60 MG
     Route: 048
     Dates: start: 20000201, end: 20000301
  4. ACCUTANE [Suspect]
     Dosage: REPORTED AS 40 MG AND 10 MG
     Route: 048
     Dates: start: 20000301, end: 20000401
  5. ORTHO TRI-CYCLEN [Concomitant]
     Route: 048
     Dates: start: 19990101
  6. ALBUTEROL [Concomitant]
  7. ALLEGRA [Concomitant]
  8. CLEOCIN LOTION [Concomitant]
  9. PROZAC [Concomitant]
  10. FLONASE [Concomitant]

REACTIONS (41)
  - ABDOMINAL DISTENSION [None]
  - ACNE [None]
  - ACRODERMATITIS [None]
  - ALCOHOL USE [None]
  - ANOREXIA [None]
  - ANXIETY [None]
  - ASTHENIA [None]
  - ASTHMA [None]
  - ATROPHY [None]
  - BLOOD GLUCOSE INCREASED [None]
  - CHILLS [None]
  - COLITIS [None]
  - COLITIS ULCERATIVE [None]
  - CONSTIPATION [None]
  - DEHYDRATION [None]
  - DEPRESSION [None]
  - DERMATITIS [None]
  - DIARRHOEA [None]
  - DIZZINESS [None]
  - DRY SKIN [None]
  - FATIGUE [None]
  - FLATULENCE [None]
  - GASTROENTERITIS [None]
  - GASTROINTESTINAL DISORDER [None]
  - HEADACHE [None]
  - INFLAMMATORY BOWEL DISEASE [None]
  - INTESTINAL HAEMORRHAGE [None]
  - IRRITABLE BOWEL SYNDROME [None]
  - MUCOUS STOOLS [None]
  - MULTI-ORGAN DISORDER [None]
  - NAUSEA [None]
  - OEDEMA MUCOSAL [None]
  - POUCHITIS [None]
  - RECTAL HAEMORRHAGE [None]
  - RECTAL TENESMUS [None]
  - RED BLOOD CELL SEDIMENTATION RATE INCREASED [None]
  - RENAL FAILURE [None]
  - RHINITIS [None]
  - SINUSITIS [None]
  - URINARY TRACT INFECTION [None]
  - WEIGHT DECREASED [None]
